FAERS Safety Report 4307471-X (Version None)
Quarter: 2004Q1

REPORT INFORMATION
  Report Type: 
  Country: None (occurrence: None)
  Receive Date: 20040226
  Receipt Date: 20040220
  Transmission Date: 20041129
  Serious: Yes (Life-Threatening, Hospitalization)
  Sender: FDA-Public Use
  Company Number: DK-JNJFOC-20040204890

PATIENT
  Age: 45 Year
  Sex: Female
  Weight: 60.5 kg

DRUGS (3)
  1. REMICADE [Suspect]
     Indication: CROHN'S DISEASE
     Dosage: 300 MG, INTRAVENOUS
     Route: 042
     Dates: start: 20040105, end: 20040122
  2. REMICADE [Suspect]
     Indication: CROHN'S DISEASE
     Dosage: 300 MG, INTRAVENOUS
     Route: 042
     Dates: start: 20020101
  3. CETIRIZINE HCL [Concomitant]

REACTIONS (2)
  - ANAPHYLACTIC SHOCK [None]
  - CROHN'S DISEASE [None]
